FAERS Safety Report 4838999-1 (Version None)
Quarter: 2005Q4

REPORT INFORMATION
  Report Type: 
  Country: None (occurrence: None)
  Receive Date: 20051129
  Receipt Date: 20051122
  Transmission Date: 20060501
  Serious: Yes (Death)
  Sender: FDA-Public Use
  Company Number: GB-JNJFOC-20051105540

PATIENT
  Sex: Female
  Weight: 80 kg

DRUGS (13)
  1. REMICADE [Suspect]
     Indication: RHEUMATOID ARTHRITIS
     Route: 042
  2. SULFASALAZINE [Concomitant]
     Route: 065
  3. LEFLUNOMIDE [Concomitant]
     Route: 065
  4. PREDNISOLONE [Concomitant]
     Route: 065
  5. CALCITRIOL [Concomitant]
     Route: 065
  6. CELIPROLOL [Concomitant]
     Route: 065
  7. CO-AMILOZIDE [Concomitant]
     Route: 065
  8. CO-AMILOZIDE [Concomitant]
     Route: 065
  9. CO-PROXAMOL [Concomitant]
     Route: 065
  10. CO-PROXAMOL [Concomitant]
     Route: 065
  11. FERROUS SULFATE TAB [Concomitant]
     Route: 065
  12. HYDROXYZINE [Concomitant]
     Route: 065
  13. IBUPROFEN [Concomitant]
     Route: 065

REACTIONS (3)
  - CARDIO-RESPIRATORY ARREST [None]
  - CEREBROVASCULAR ACCIDENT [None]
  - MYOCARDIAL ISCHAEMIA [None]
